FAERS Safety Report 6617359-7 (Version None)
Quarter: 2010Q1

REPORT INFORMATION
  Report Type: 
  Country: None (occurrence: None)
  Receive Date: 20100307
  Receipt Date: 20100118
  Transmission Date: 20100710
  Serious: No
  Sender: FDA-Public Use
  Company Number: DK-BAYER-201010628GPV

PATIENT
  Sex: Female

DRUGS (12)
  1. GADOLINIUMHOLDING CONTRAST AGENT [Suspect]
     Indication: SCAN WITH CONTRAST
     Route: 042
     Dates: start: 20070906
  2. KLIOGEST [Concomitant]
     Dosage: 1 + 2 MG
     Route: 048
  3. MAREVAN [Concomitant]
     Dosage: 2.5 MILLIGRAM(S)
     Route: 048
  4. BERODUAL [Concomitant]
     Route: 055
  5. FURIX [Concomitant]
     Route: 048
  6. KALEORID [Concomitant]
     Dosage: 750 MILLIGRAM(S)
     Route: 048
  7. SELO-ZOK [Concomitant]
     Route: 048
  8. IBUPROFEN ^ACTAVIS^ [Concomitant]
     Dosage: 400 MILLIGRAM(S)
     Route: 048
  9. SIMVASTATIN ^KRKA^ [Concomitant]
     Route: 048
  10. DOLOXENE [Concomitant]
     Route: 048
  11. DIGOXIN ^DAK^ [Concomitant]
     Dosage: 62.5 MICROGRAM(S)
     Route: 048
  12. OXIS TURBUHALER [Concomitant]
     Dosage: 9 MICROGRAM(S)/DOSE
     Route: 055

REACTIONS (5)
  - ABDOMINAL PAIN [None]
  - ARTHRALGIA [None]
  - INSOMNIA [None]
  - PAIN IN EXTREMITY [None]
  - PRURITUS [None]
